FAERS Safety Report 7447907-9 (Version None)
Quarter: 2011Q2

REPORT INFORMATION
  Report Type: 
  Country: None (occurrence: None)
  Receive Date: 20110429
  Receipt Date: 20101111
  Transmission Date: 20111010
  Serious: No
  Sender: FDA-Public Use
  Company Number: US-ASTRAZENECA-2009UW04586

PATIENT
  Age: 61 Year
  Sex: Female
  Weight: 72.1 kg

DRUGS (7)
  1. NEXIUM [Suspect]
     Indication: GASTROOESOPHAGEAL REFLUX DISEASE
     Route: 048
     Dates: start: 20090225
  2. DRAMAMINE [Concomitant]
  3. ASPIRIN [Concomitant]
  4. UNSPECIFIED [Concomitant]
     Indication: PAIN
  5. DIAZEPAM [Concomitant]
  6. DIGOXIN [Concomitant]
  7. EYE DROPS [Concomitant]

REACTIONS (5)
  - DYSPEPSIA [None]
  - DRUG INEFFECTIVE [None]
  - CARDIAC FLUTTER [None]
  - BARRETT'S OESOPHAGUS [None]
  - GASTROOESOPHAGEAL REFLUX DISEASE [None]
